FAERS Safety Report 18073070 (Version 1)
Quarter: 2020Q3

REPORT INFORMATION
  Report Type: Spontaneous
  Country: TW (occurrence: TW)
  Receive Date: 20200727
  Receipt Date: 20200727
  Transmission Date: 20201103
  Serious: Yes (Hospitalization)
  Sender: FDA-Public Use
  Company Number: TW-PFIZER INC-2020281062

PATIENT
  Age: 52 Year
  Sex: Male

DRUGS (4)
  1. WARFARIN [Concomitant]
     Active Substance: WARFARIN
     Dosage: UNK
  2. WARFARIN [Concomitant]
     Active Substance: WARFARIN
     Dosage: 1.5 DF, QD
  3. BENEFIX [Suspect]
     Active Substance: COAGULATION FACTOR IX RECOMBINANT HUMAN\ISOPROPYL ALCOHOL
     Dosage: 5000 IU, Q12H
     Route: 042
     Dates: start: 20200722
  4. BENEFIX [Suspect]
     Active Substance: COAGULATION FACTOR IX RECOMBINANT HUMAN\ISOPROPYL ALCOHOL
     Indication: FACTOR IX DEFICIENCY
     Dosage: 5000 IU, AS NEEDED (USE ON DEMAND)
     Route: 042
     Dates: start: 201810

REACTIONS (2)
  - Intestinal obstruction [Not Recovered/Not Resolved]
  - Benign small intestinal neoplasm [Not Recovered/Not Resolved]

NARRATIVE: CASE EVENT DATE: 202007
